FAERS Safety Report 15138789 (Version 2)
Quarter: 2018Q3

REPORT INFORMATION
  Report Type: Spontaneous
  Country: US (occurrence: US)
  Receive Date: 20180713
  Receipt Date: 20180725
  Transmission Date: 20181010
  Serious: Yes (Other)
  Sender: FDA-Public Use
  Company Number: US-TEVA-2018-US-922888

PATIENT
  Age: 87 Year
  Sex: Female

DRUGS (2)
  1. ALENDRONATE SODIUM. [Suspect]
     Active Substance: ALENDRONATE SODIUM
     Indication: OSTEOPOROSIS
     Route: 065
  2. CALCIUM SUPPLEMENT [Concomitant]
     Active Substance: CALCIUM
     Route: 065

REACTIONS (5)
  - Retinal vein occlusion [Unknown]
  - Localised infection [Unknown]
  - Diarrhoea [Unknown]
  - Poor peripheral circulation [Unknown]
  - Drug dose omission [Unknown]

NARRATIVE: CASE EVENT DATE: 20180704
